FAERS Safety Report 5628627-X (Version None)
Quarter: 2008Q1

REPORT INFORMATION
  Report Type: 
  Country: None (occurrence: None)
  Receive Date: 20080215
  Receipt Date: 20080205
  Transmission Date: 20080703
  Serious: Yes (Hospitalization)
  Sender: FDA-Public Use
  Company Number: IT-PFIZER INC-2008011794

PATIENT
  Sex: Female

DRUGS (3)
  1. TORVAST [Suspect]
     Route: 048
  2. TICLID [Suspect]
     Route: 048
     Dates: start: 20071203, end: 20080107
  3. CORDARONE [Suspect]
     Indication: ATRIAL FIBRILLATION
     Route: 048
     Dates: start: 20071203, end: 20080107

REACTIONS (1)
  - HEPATITIS CHOLESTATIC [None]
